FAERS Safety Report 9904210 (Version 1)
Quarter: 2014Q1

REPORT INFORMATION
  Report Type: Report from Study
  Country: US (occurrence: US)
  Receive Date: 20140218
  Receipt Date: 20140218
  Transmission Date: 20141002
  Serious: Yes (Other)
  Sender: FDA-Public Use
  Company Number: US-ROCHE-1329064

PATIENT
  Sex: Male
  Weight: 88.4 kg

DRUGS (6)
  1. AVASTIN [Suspect]
     Indication: COLON CANCER METASTATIC
     Dosage: 17/MAY/2012, 31/MAY/2012, 21/JUN/2012, 12/JUL/2012, 02/AUG/2012, 23/AUG/2012, 14/SEP/2012, 02/OCT/20
     Route: 042
  2. AVASTIN [Suspect]
     Route: 042
     Dates: start: 20120531
  3. XELODA [Suspect]
     Indication: COLON CANCER METASTATIC
     Route: 042
  4. PHENERGAN [Concomitant]
     Route: 042
     Dates: start: 20120712, end: 20120712
  5. PHENERGAN [Concomitant]
     Route: 042
     Dates: start: 20120531, end: 20120531
  6. ONDANSETRON [Concomitant]
     Route: 042

REACTIONS (1)
  - Chest discomfort [Unknown]
